FAERS Safety Report 16792120 (Version 1)
Quarter: 2019Q3

REPORT INFORMATION
  Report Type: Spontaneous
  Country: US (occurrence: US)
  Receive Date: 20190910
  Receipt Date: 20190910
  Transmission Date: 20191005
  Serious: Yes (Hospitalization)
  Sender: FDA-Public Use
  Company Number: US-TEVA-2019-US-1105350

PATIENT
  Age: 35 Year
  Sex: Female

DRUGS (9)
  1. COBICISTAT/ELVITEGRAVIR/EMTRICITABINE/TENOFOVIR ALAFENAMIDE FUMARATE [Interacting]
     Active Substance: COBICISTAT\ELVITEGRAVIR\EMTRICITABINE\TENOFOVIR ALAFENAMIDE FUMARATE
     Indication: HIV INFECTION
     Route: 065
     Dates: start: 201703
  2. PYRIMETHAMINE [Concomitant]
     Active Substance: PYRIMETHAMINE
     Dosage: 75 MILLIGRAM DAILY;
     Route: 048
  3. EFAVIRENZ/EMTRICITABINE/TENOFOVIR DISOPROXIL FUMARATE [Interacting]
     Active Substance: EFAVIRENZ\EMTRICITABINE\TENOFOVIR DISOPROXIL FUMARATE
     Indication: CEREBRAL TOXOPLASMOSIS
     Route: 065
     Dates: start: 201610
  4. COBICISTAT/ELVITEGRAVIR/EMTRICITABINE/TENOFOVIR ALAFENAMIDE FUMARATE [Interacting]
     Active Substance: COBICISTAT\ELVITEGRAVIR\EMTRICITABINE\TENOFOVIR ALAFENAMIDE FUMARATE
     Indication: CEREBRAL TOXOPLASMOSIS
  5. EFAVIRENZ/EMTRICITABINE/TENOFOVIR DISOPROXIL FUMARATE [Interacting]
     Active Substance: EFAVIRENZ\EMTRICITABINE\TENOFOVIR DISOPROXIL FUMARATE
     Indication: HIV INFECTION
  6. CLINDAMYCIN. [Suspect]
     Active Substance: CLINDAMYCIN
     Dosage: 2400 MILLIGRAM DAILY;
     Route: 042
  7. LEUCOVORIN CALCIUM. [Interacting]
     Active Substance: LEUCOVORIN CALCIUM
     Indication: SUPPLEMENTATION THERAPY
     Dosage: 8 MG ELEMENTAL CALCIUM
     Route: 065
  8. LEUCOVORIN CALCIUM. [Suspect]
     Active Substance: LEUCOVORIN CALCIUM
     Indication: SUPPLEMENTATION THERAPY
     Dosage: 25 MILLIGRAM DAILY;
     Route: 065
  9. ATOVAQUONE. [Concomitant]
     Active Substance: ATOVAQUONE
     Indication: ANTIFUNGAL PROPHYLAXIS

REACTIONS (5)
  - Pyrexia [Recovered/Resolved]
  - Rash morbilliform [Recovered/Resolved]
  - Drug interaction [Unknown]
  - Transaminases increased [Recovered/Resolved]
  - Pathogen resistance [Unknown]
